FAERS Safety Report 7674159-7 (Version None)
Quarter: 2011Q3

REPORT INFORMATION
  Report Type: 
  Country: None (occurrence: None)
  Receive Date: 20110810
  Receipt Date: 20110805
  Transmission Date: 20111222
  Serious: Yes (Other)
  Sender: FDA-Public Use
  Company Number: CN-PFIZER INC-2011180557

PATIENT
  Age: 6 Year
  Sex: Male

DRUGS (1)
  1. CEFOBID [Suspect]
     Indication: DYSENTERY
     Dosage: 2 G
     Route: 041

REACTIONS (2)
  - ANAPHYLACTIC SHOCK [None]
  - ASTHMA [None]
